FAERS Safety Report 21141862 (Version 1)
Quarter: 2022Q3

REPORT INFORMATION
  Report Type: Spontaneous
  Country: US (occurrence: US)
  Receive Date: 20220728
  Receipt Date: 20220728
  Transmission Date: 20221027
  Serious: No
  Sender: FDA-Public Use
  Company Number: US-Rhythm Pharmaceuticals, Inc.-2022RHM000011

PATIENT
  Age: 16 Year
  Sex: Female

DRUGS (8)
  1. IMCIVREE [Suspect]
     Active Substance: SETMELANOTIDE
     Indication: Off label use
     Dosage: 2 MG (0.2 ML)
     Route: 058
     Dates: start: 20220216
  2. IMCIVREE [Suspect]
     Active Substance: SETMELANOTIDE
     Dosage: 1 MG (0.1 ML) FOR A WEEK
     Route: 058
  3. IMCIVREE [Suspect]
     Active Substance: SETMELANOTIDE
     Dosage: 2 MG (0.2 ML)
     Route: 058
  4. CLONIDINE [Concomitant]
     Active Substance: CLONIDINE
     Indication: Product used for unknown indication
     Route: 065
  5. OMEPRAZOLE [Concomitant]
     Active Substance: OMEPRAZOLE
     Indication: Product used for unknown indication
     Route: 065
  6. quilbree [Concomitant]
     Indication: Product used for unknown indication
     Route: 065
  7. TOPAMAX [Concomitant]
     Active Substance: TOPIRAMATE
     Indication: Product used for unknown indication
     Route: 065
  8. victozia [Concomitant]
     Indication: Product used for unknown indication
     Route: 065

REACTIONS (8)
  - Increased appetite [Not Recovered/Not Resolved]
  - Weight increased [Not Recovered/Not Resolved]
  - Off label use [Not Recovered/Not Resolved]
  - Product preparation issue [Unknown]
  - Nausea [Not Recovered/Not Resolved]
  - Headache [Not Recovered/Not Resolved]
  - Injection site nodule [Not Recovered/Not Resolved]
  - Drug ineffective for unapproved indication [Unknown]

NARRATIVE: CASE EVENT DATE: 20220217
